FAERS Safety Report 22288752 (Version 3)
Quarter: 2023Q2

REPORT INFORMATION
  Report Type: Report from Study
  Country: DE (occurrence: DE)
  Receive Date: 20230505
  Receipt Date: 20230605
  Transmission Date: 20230722
  Serious: Yes (Hospitalization, Other)
  Sender: FDA-Public Use
  Company Number: DE-002147023-NVSC2023DE083455

PATIENT
  Age: 62 Year
  Sex: Female
  Weight: 78.5 kg

DRUGS (13)
  1. COSENTYX [Suspect]
     Active Substance: SECUKINUMAB
     Indication: Psoriasis
     Dosage: 300 MG, QMO (EVERY 4 WEEKS)
     Route: 058
     Dates: start: 20161114
  2. CATHEJELL [Concomitant]
     Indication: Product used for unknown indication
     Dosage: UNK
     Route: 065
  3. PROPOFOL [Concomitant]
     Active Substance: PROPOFOL
     Indication: Product used for unknown indication
     Dosage: 340 MG (FRACTIONATED)
     Route: 042
  4. PROPOFOL [Concomitant]
     Active Substance: PROPOFOL
     Dosage: 330 MG (FRACTIONATED)
     Route: 042
  5. METHOTREXATE [Concomitant]
     Active Substance: METHOTREXATE
     Indication: Product used for unknown indication
     Dosage: 75 MG, QW
     Route: 048
     Dates: start: 20030316
  6. FOLIC ACID [Concomitant]
     Active Substance: FOLIC ACID
     Indication: Product used for unknown indication
     Dosage: 5 MG, QW
     Route: 048
     Dates: start: 20030316
  7. LEVOTHYROXINE SODIUM\POTASSIUM IODIDE [Concomitant]
     Active Substance: LEVOTHYROXINE SODIUM\POTASSIUM IODIDE
     Indication: Product used for unknown indication
     Dosage: 75 UG, QD
     Route: 048
     Dates: start: 20060101
  8. LERCANIDIPINE [Concomitant]
     Active Substance: LERCANIDIPINE
     Indication: Product used for unknown indication
     Dosage: 20 MG, QD
     Route: 048
     Dates: start: 20201214
  9. ASPIRIN [Concomitant]
     Active Substance: ASPIRIN
     Indication: Product used for unknown indication
     Dosage: 100 MG, QD
     Route: 048
     Dates: start: 20200910
  10. CHOLECALCIFEROL [Concomitant]
     Active Substance: CHOLECALCIFEROL
     Indication: Product used for unknown indication
     Dosage: 1000 IU, QD
     Route: 048
     Dates: start: 20210815
  11. ESOMEPRAZOLE [Concomitant]
     Active Substance: ESOMEPRAZOLE
     Indication: Product used for unknown indication
     Dosage: 20 MG, BID
     Route: 048
     Dates: start: 20230206
  12. ROSUVASTATIN [Concomitant]
     Active Substance: ROSUVASTATIN
     Indication: Product used for unknown indication
     Dosage: 20 MG, QD
     Route: 048
     Dates: start: 20230105
  13. OESTRO-GYNAEDRON [Concomitant]
     Indication: Product used for unknown indication
     Dosage: 1 MG, Q2W
     Route: 067
     Dates: start: 20220905

REACTIONS (20)
  - Non-Hodgkin^s lymphoma [Not Recovered/Not Resolved]
  - Gastritis [Not Recovered/Not Resolved]
  - Marginal zone lymphoma [Unknown]
  - B-cell lymphoma [Unknown]
  - Bone marrow failure [Unknown]
  - Weight decreased [Unknown]
  - Gastrointestinal mucosal disorder [Unknown]
  - Large intestine polyp [Unknown]
  - Flatulence [Unknown]
  - Oedema mucosal [Unknown]
  - Peristalsis visible [Unknown]
  - Enostosis [Unknown]
  - Abdominal wall mass [Unknown]
  - Lymphocytosis [Unknown]
  - Iron deficiency [Unknown]
  - Osteopenia [Unknown]
  - Reflux gastritis [Unknown]
  - Cystitis glandularis [Unknown]
  - Gastrooesophageal reflux disease [Unknown]
  - Colorectal adenoma [Unknown]

NARRATIVE: CASE EVENT DATE: 20230206
